FAERS Safety Report 18435703 (Version 1)
Quarter: 2020Q4

REPORT INFORMATION
  Report Type: Spontaneous
  Country: CH (occurrence: CH)
  Receive Date: 20201028
  Receipt Date: 20201028
  Transmission Date: 20210114
  Serious: Yes (Other)
  Sender: FDA-Public Use
  Company Number: CH-ELI_LILLY_AND_COMPANY-CH202010009090

PATIENT
  Age: 77 Year
  Sex: Male

DRUGS (6)
  1. CARBOPLATIN TEVA [Suspect]
     Active Substance: CARBOPLATIN
     Indication: LUNG ADENOCARCINOMA STAGE IV
     Dosage: 400 MG, UNK
     Route: 041
     Dates: start: 20200504, end: 20200614
  2. XARELTO [Concomitant]
     Active Substance: RIVAROXABAN
     Indication: ATRIAL FIBRILLATION
     Dosage: 20 MG, UNK
     Route: 048
  3. ALIMTA [Suspect]
     Active Substance: PEMETREXED DISODIUM
     Indication: LUNG ADENOCARCINOMA STAGE IV
     Dosage: 800 MG, UNK
     Route: 041
     Dates: start: 20200504, end: 20200614
  4. INDERAL [Concomitant]
     Active Substance: PROPRANOLOL HYDROCHLORIDE
     Indication: PRODUCT USED FOR UNKNOWN INDICATION
     Dosage: 40 MG, UNK
     Route: 048
  5. PANTOZOL [Concomitant]
     Active Substance: PANTOPRAZOLE SODIUM
     Indication: PRODUCT USED FOR UNKNOWN INDICATION
     Dosage: 20 MG, UNK
     Route: 048
  6. KEYTRUDA [Suspect]
     Active Substance: PEMBROLIZUMAB
     Indication: LUNG ADENOCARCINOMA STAGE IV
     Dosage: 200 MG, UNK
     Route: 041
     Dates: start: 20200504, end: 20200614

REACTIONS (3)
  - Off label use [Unknown]
  - Rheumatoid arthritis [Not Recovered/Not Resolved]
  - Psoriasis [Not Recovered/Not Resolved]

NARRATIVE: CASE EVENT DATE: 20200514
